FAERS Safety Report 25099540 (Version 1)
Quarter: 2025Q1

REPORT INFORMATION
  Report Type: Report from Study
  Country: CA (occurrence: CA)
  Receive Date: 20250320
  Receipt Date: 20250320
  Transmission Date: 20250409
  Serious: Yes (Other)
  Sender: TAKEDA
  Company Number: CA-TAKEDA-2024TUS090729

PATIENT
  Sex: Male

DRUGS (5)
  1. VEDOLIZUMAB [Suspect]
     Active Substance: VEDOLIZUMAB
     Indication: Crohn^s disease
     Dates: start: 20150911, end: 20150918
  2. VEDOLIZUMAB [Suspect]
     Active Substance: VEDOLIZUMAB
  3. VEDOLIZUMAB [Suspect]
     Active Substance: VEDOLIZUMAB
     Indication: Crohn^s disease
  4. HUMIRA [Concomitant]
     Active Substance: ADALIMUMAB
  5. LYRICA [Concomitant]
     Active Substance: PREGABALIN

REACTIONS (4)
  - Crohn^s disease [Unknown]
  - Treatment failure [Unknown]
  - Ulcer [Unknown]
  - Arthralgia [Unknown]
